FAERS Safety Report 13251565 (Version 1)
Quarter: 2017Q1

REPORT INFORMATION
  Report Type: Spontaneous
  Country: US (occurrence: US)
  Receive Date: 20170220
  Receipt Date: 20170220
  Transmission Date: 20170428
  Serious: No
  Sender: FDA-Public Use
  Company Number: US-TEVA-645580USA

PATIENT
  Sex: Female

DRUGS (1)
  1. PROGESTERONE. [Suspect]
     Active Substance: PROGESTERONE
     Indication: ENDOMETRIAL HYPERPLASIA

REACTIONS (6)
  - Tremor [Unknown]
  - Dizziness [Unknown]
  - Withdrawal syndrome [Unknown]
  - Uterine disorder [Unknown]
  - Vaginal haemorrhage [Unknown]
  - Hot flush [Unknown]
